FAERS Safety Report 8007602-4 (Version None)
Quarter: 2011Q4

REPORT INFORMATION
  Report Type: 
  Country: None (occurrence: None)
  Receive Date: 20111222
  Receipt Date: 20111222
  Transmission Date: 20120403
  Serious: No
  Sender: FDA-Public Use
  Company Number: None

PATIENT
  Sex: Female
  Weight: 149.687 kg

DRUGS (1)
  1. MIRENA [Suspect]

REACTIONS (6)
  - ABDOMINAL PAIN UPPER [None]
  - ARTHRALGIA [None]
  - PAIN [None]
  - SEPSIS [None]
  - RHEUMATIC FEVER [None]
  - MOVEMENT DISORDER [None]
